FAERS Safety Report 10039560 (Version 1)
Quarter: 2014Q1

REPORT INFORMATION
  Report Type: Spontaneous
  Country: US (occurrence: None)
  Receive Date: 20140306
  Receipt Date: 20140306
  Transmission Date: 20141002
  Serious: Yes (Other)
  Sender: FDA-Public Use
  Company Number: 163-21880-11050090

PATIENT
  Age: 65 Year
  Sex: Female
  Weight: 90.72 kg

DRUGS (3)
  1. REVLIMID [Suspect]
     Indication: PLASMA CELL MYELOMA
     Dosage: 21 IN 21 D
     Route: 048
     Dates: start: 201102, end: 20110421
  2. DEXAMETHASONE [Concomitant]
  3. VITAMINS [Concomitant]

REACTIONS (8)
  - Cataract [None]
  - Faecal incontinence [None]
  - Irritability [None]
  - Insomnia [None]
  - Weight increased [None]
  - Memory impairment [None]
  - Neuropathy peripheral [None]
  - Local swelling [None]
